FAERS Safety Report 8064200-4 (Version None)
Quarter: 2012Q1

REPORT INFORMATION
  Report Type: 
  Country: None (occurrence: None)
  Receive Date: 20120123
  Receipt Date: 20120109
  Transmission Date: 20120608
  Serious: Yes (Death)
  Sender: FDA-Public Use
  Company Number: US-ROCHE-1023629

PATIENT
  Sex: Male

DRUGS (8)
  1. PREDNISONE [Concomitant]
     Dosage: 40 MAG DAY 1, 30 MG THE NEXT, 20MG THE NEXT, THEN 2 DAYS OF 10
  2. VITAMIN D [Concomitant]
  3. FENTANYL-100 [Concomitant]
  4. ACTONEL [Concomitant]
     Dosage: 35 MG A WEEK.
  5. METFORMIN HYDROCHLORIDE [Concomitant]
  6. CALCIUM [Concomitant]
  7. ACTEMRA [Suspect]
     Indication: PRODUCT USED FOR UNKNOWN INDICATION
  8. NEXIUM [Concomitant]
     Dosage: DAILY

REACTIONS (1)
  - DEATH [None]
